FAERS Safety Report 8455000-1 (Version None)
Quarter: 2012Q2

REPORT INFORMATION
  Report Type: 
  Country: None (occurrence: None)
  Receive Date: 20120621
  Receipt Date: 20120614
  Transmission Date: 20120825
  Serious: No
  Sender: FDA-Public Use
  Company Number: US-PFIZER INC-2012121457

PATIENT
  Sex: Male
  Weight: 79.365 kg

DRUGS (4)
  1. VFEND [Suspect]
     Indication: BRONCHOPULMONARY ASPERGILLOSIS
     Dosage: 200 MG, 2X/DAY
     Route: 048
     Dates: start: 20120329, end: 20120425
  2. ACETYLSALICYLIC ACID [Concomitant]
     Dosage: 81 MG
  3. MULTIPLE VITAMINS [Concomitant]
     Dosage: UNK
  4. VFEND [Suspect]
     Dosage: 300 MG, 2X/DAY
     Route: 048
     Dates: start: 20120426, end: 20120608

REACTIONS (9)
  - SKIN DISCOLOURATION [None]
  - CHAPPED LIPS [None]
  - ORAL HERPES [None]
  - SUNBURN [None]
  - LIP EXFOLIATION [None]
  - DRUG LEVEL DECREASED [None]
  - LIP INJURY [None]
  - PHOTOSENSITIVITY REACTION [None]
  - LIP DRY [None]
